FAERS Safety Report 5475237-3 (Version None)
Quarter: 2007Q4

REPORT INFORMATION
  Report Type: 
  Country: None (occurrence: None)
  Receive Date: 20071002
  Receipt Date: 20070920
  Transmission Date: 20080405
  Serious: Yes (Hospitalization, Other)
  Sender: FDA-Public Use
  Company Number: US-PFIZER INC-2007080147

PATIENT
  Sex: Female
  Weight: 54.4 kg

DRUGS (2)
  1. CHANTIX [Suspect]
     Indication: SMOKING CESSATION THERAPY
     Dates: start: 20070401, end: 20070908
  2. VALIUM [Concomitant]

REACTIONS (10)
  - ABNORMAL DREAMS [None]
  - BLOOD ALKALINE PHOSPHATASE DECREASED [None]
  - BLOOD GLUCOSE INCREASED [None]
  - BLOOD POTASSIUM DECREASED [None]
  - CONSTIPATION [None]
  - FLATULENCE [None]
  - NAUSEA [None]
  - PERSONALITY CHANGE [None]
  - PSYCHOTIC DISORDER [None]
  - VOMITING [None]
